FAERS Safety Report 8616581-8 (Version None)
Quarter: 2012Q3

REPORT INFORMATION
  Report Type: 
  Country: None (occurrence: None)
  Receive Date: 20120823
  Receipt Date: 20120817
  Transmission Date: 20120928
  Serious: Yes (Life-Threatening, Hospitalization, Other)
  Sender: FDA-Public Use
  Company Number: DE-ROCHE-698354

PATIENT
  Sex: Male
  Weight: 88 kg

DRUGS (6)
  1. OXYCODONE HYDROCHLORIDE [Concomitant]
     Indication: RHEUMATOID ARTHRITIS
     Route: 048
  2. METHOTREXATE [Concomitant]
     Route: 058
  3. ROACTEMRA [Suspect]
     Indication: RHEUMATOID ARTHRITIS
     Dosage: MONTHLY DOSAGE 752 MG. LAST APPLICATIONS ON 9/DEC/2009, 7/JAN/2010, 4/FEB/2010 AND ON 3/MAR/2010
     Route: 042
  4. PREDNISOLONE [Concomitant]
     Indication: RHEUMATOID ARTHRITIS
     Route: 048
  5. METHOTREXATE [Concomitant]
     Indication: RHEUMATOID ARTHRITIS
     Route: 058
  6. METHOTREXATE [Concomitant]
     Route: 058

REACTIONS (8)
  - ALANINE AMINOTRANSFERASE INCREASED [None]
  - DEVICE RELATED INFECTION [None]
  - SKIN ULCER [None]
  - PSORIASIS [None]
  - GAMMA-GLUTAMYLTRANSFERASE INCREASED [None]
  - ANAEMIA [None]
  - GASTRITIS [None]
  - ASPARTATE AMINOTRANSFERASE INCREASED [None]
